FAERS Safety Report 4757056-6 (Version None)
Quarter: 2005Q3

REPORT INFORMATION
  Report Type: 
  Country: None (occurrence: None)
  Receive Date: 20050831
  Receipt Date: 20050518
  Transmission Date: 20060218
  Serious: Yes (Hospitalization)
  Sender: FDA-Public Use
  Company Number: US-BOEHRINGER INGELHEIM PHARMACEUTICALS, INC.-2005-BP-08214BP

PATIENT
  Age: 55 Year
  Sex: Female
  Weight: 71.67 kg

DRUGS (29)
  1. COMBIVENT [Suspect]
     Indication: CHRONIC OBSTRUCTIVE PULMONARY DISEASE
     Dosage: AND AS NEEDED
     Route: 055
     Dates: start: 20050419
  2. COMBIVENT [Suspect]
     Indication: ASTHMA
  3. COMBIVENT [Suspect]
     Indication: EMPHYSEMA
  4. ADVAIR DISKUS 100/50 [Concomitant]
     Indication: CHRONIC OBSTRUCTIVE PULMONARY DISEASE
     Dosage: 2 PUFFS BID
  5. ADVAIR DISKUS 100/50 [Concomitant]
     Indication: ASTHMA
  6. OXYGEN [Concomitant]
     Indication: CHRONIC OBSTRUCTIVE PULMONARY DISEASE
     Dosage: 2 LITER / AT NIGHT
  7. FOSAMAX [Concomitant]
  8. CALTRATE [Concomitant]
     Dosage: 600 PLUS W/ AM + PM MEALS
  9. MULTIVITA Q DA [Concomitant]
  10. VERAPAMIL [Concomitant]
     Indication: SUPRAVENTRICULAR TACHYCARDIA
  11. LEVOXYL [Concomitant]
     Indication: HYPOTHYROIDISM
  12. WELLBUTRIN SR [Concomitant]
     Indication: DEPRESSION
  13. METHADONE HCL [Concomitant]
     Indication: PAIN
     Dosage: 30 MG Q8H
  14. DARVOCET-N 100 [Concomitant]
     Indication: PAIN
     Dosage: 1 TABLET Q8H PRN
  15. LASIX [Concomitant]
     Indication: FLUID RETENTION
     Dosage: 40-80 MG BID PRN
  16. POTASSIUM CHLORIDE [Concomitant]
     Dosage: 20 MEQ IF LASIX IS USED
  17. ABILIFY [Concomitant]
     Indication: DEPRESSION
  18. REMERON [Concomitant]
     Indication: DEPRESSION
  19. ESTRACE [Concomitant]
     Indication: MENOPAUSAL SYMPTOMS
  20. IMDUR [Concomitant]
     Indication: ARTERIOSPASM CORONARY
  21. VALIUM [Concomitant]
     Indication: MUSCLE SPASMS
  22. PREVACID [Concomitant]
     Indication: OESOPHAGEAL SPASM
  23. PREVACID [Concomitant]
     Indication: GASTROOESOPHAGEAL REFLUX DISEASE
  24. NITROGLYCERIN [Concomitant]
     Indication: CHEST PAIN
  25. TIGAN [Concomitant]
     Indication: NAUSEA
  26. COMPAZINE [Concomitant]
     Indication: NAUSEA
  27. RESTORIL [Concomitant]
  28. ATARAX [Concomitant]
     Indication: PRURITUS
  29. ATIVAN [Concomitant]
     Indication: ANXIETY

REACTIONS (3)
  - DRUG INEFFECTIVE [None]
  - DYSGEUSIA [None]
  - PHARMACEUTICAL PRODUCT COMPLAINT [None]
